FAERS Safety Report 15544627 (Version 2)
Quarter: 2018Q4

REPORT INFORMATION
  Report Type: Spontaneous
  Country: US (occurrence: US)
  Receive Date: 20181024
  Receipt Date: 20181115
  Transmission Date: 20190205
  Serious: Yes (Hospitalization)
  Sender: FDA-Public Use
  Company Number: US-BEH-2018095889

PATIENT
  Age: 2 Year
  Sex: Female

DRUGS (2)
  1. PRIVIGEN [Suspect]
     Active Substance: HUMAN IMMUNOGLOBULIN G
     Indication: IMMUNODEFICIENCY
     Dosage: 10 G, FOR 2 DAYS EVERY 2 WEEKS
     Route: 042
     Dates: start: 20180524, end: 20181018
  2. PRIVIGEN [Suspect]
     Active Substance: HUMAN IMMUNOGLOBULIN G
     Indication: BRONCHOPULMONARY DYSPLASIA

REACTIONS (6)
  - Complication associated with device [Unknown]
  - Decreased appetite [Unknown]
  - Sepsis [Unknown]
  - Pyrexia [Unknown]
  - Eyelid ptosis [Unknown]
  - Osteomyelitis [Unknown]

NARRATIVE: CASE EVENT DATE: 20180921
